FAERS Safety Report 5170266-1 (Version None)
Quarter: 2006Q4

REPORT INFORMATION
  Report Type: 
  Country: None (occurrence: None)
  Receive Date: 20061212
  Receipt Date: 20061127
  Transmission Date: 20070319
  Serious: Yes (Other)
  Sender: FDA-Public Use
  Company Number: ES-BRISTOL-MYERS SQUIBB COMPANY-13591060

PATIENT
  Age: 21 Year

DRUGS (3)
  1. PACLITAXEL [Suspect]
     Indication: GERM CELL CANCER
  2. IFOSFAMIDE [Suspect]
     Indication: GERM CELL CANCER
  3. CISPLATIN [Suspect]
     Indication: GERM CELL CANCER

REACTIONS (3)
  - BRADYPHRENIA [None]
  - GRAND MAL CONVULSION [None]
  - LEUKOENCEPHALOPATHY [None]
